FAERS Safety Report 11383784 (Version 2)
Quarter: 2015Q3

REPORT INFORMATION
  Report Type: Spontaneous
  Country: US (occurrence: US)
  Receive Date: 20150814
  Receipt Date: 20150817
  Transmission Date: 20151125
  Serious: Yes (Hospitalization, Other)
  Sender: FDA-Public Use
  Company Number: US-GLAXOSMITHKLINE-US2015116746

PATIENT
  Age: 87 Year
  Sex: Male

DRUGS (1)
  1. VENTOLIN HFA [Suspect]
     Active Substance: ALBUTEROL SULFATE
     Indication: ASTHMA
     Dosage: 1 DF, QID
     Route: 065
     Dates: start: 2010

REACTIONS (5)
  - Cardiac failure congestive [Recovered/Resolved]
  - Hiatus hernia [Recovered/Resolved]
  - Traumatic lung injury [Not Recovered/Not Resolved]
  - Walking aid user [Not Recovered/Not Resolved]
  - Chronic obstructive pulmonary disease [Not Recovered/Not Resolved]

NARRATIVE: CASE EVENT DATE: 2013
